FAERS Safety Report 5675554-8 (Version None)
Quarter: 2008Q1

REPORT INFORMATION
  Report Type: 
  Country: None (occurrence: None)
  Receive Date: 20080317
  Receipt Date: 20080307
  Transmission Date: 20080703
  Serious: Yes (Other)
  Sender: FDA-Public Use
  Company Number: 2008AP000601

PATIENT
  Sex: Female

DRUGS (13)
  1. PAROXETINE HCL [Suspect]
     Indication: DEPRESSION
     Dosage: 40 MG;PO;QD : PO : 30 MG;PO;QD : 40 MG;PO;QD : 60 MG;PO;QD : 40 MG;PO;QD : 40 MG;PO;QD
     Route: 048
     Dates: start: 19991201, end: 20010301
  2. PAROXETINE HCL [Suspect]
     Indication: DEPRESSION
     Dosage: 40 MG;PO;QD : PO : 30 MG;PO;QD : 40 MG;PO;QD : 60 MG;PO;QD : 40 MG;PO;QD : 40 MG;PO;QD
     Route: 048
     Dates: start: 19980601
  3. PAROXETINE HCL [Suspect]
     Indication: DEPRESSION
     Dosage: 40 MG;PO;QD : PO : 30 MG;PO;QD : 40 MG;PO;QD : 60 MG;PO;QD : 40 MG;PO;QD : 40 MG;PO;QD
     Route: 048
     Dates: start: 20011001
  4. PAROXETINE HCL [Suspect]
     Indication: DEPRESSION
     Dosage: 40 MG;PO;QD : PO : 30 MG;PO;QD : 40 MG;PO;QD : 60 MG;PO;QD : 40 MG;PO;QD : 40 MG;PO;QD
     Route: 048
     Dates: start: 20020201
  5. PAROXETINE HCL [Suspect]
     Indication: DEPRESSION
     Dosage: 40 MG;PO;QD : PO : 30 MG;PO;QD : 40 MG;PO;QD : 60 MG;PO;QD : 40 MG;PO;QD : 40 MG;PO;QD
     Route: 048
     Dates: start: 20020601
  6. PAROXETINE HCL [Suspect]
     Indication: DEPRESSION
     Dosage: 40 MG;PO;QD : PO : 30 MG;PO;QD : 40 MG;PO;QD : 60 MG;PO;QD : 40 MG;PO;QD : 40 MG;PO;QD
     Route: 048
     Dates: start: 20030212
  7. PAROXETINE HCL [Suspect]
     Indication: DEPRESSION
     Dosage: 40 MG;PO;QD : PO : 30 MG;PO;QD : 40 MG;PO;QD : 60 MG;PO;QD : 40 MG;PO;QD : 40 MG;PO;QD
     Route: 048
     Dates: start: 20041018
  8. ALCOHOL (ETHANOL) [Concomitant]
  9. AMITRIPTYLINE HCL [Concomitant]
  10. DIAZEPAM [Concomitant]
  11. ENDOCRINE THERAPY (ENDOCRINE THERAPY) [Concomitant]
  12. CONJUGATED ESTROGENS [Concomitant]
  13. NORGESTREL (NORGESTREL) [Concomitant]

REACTIONS (25)
  - ALCOHOL ABUSE [None]
  - ALCOHOL POISONING [None]
  - ANXIETY [None]
  - CONDITION AGGRAVATED [None]
  - CONFUSIONAL STATE [None]
  - DELUSION [None]
  - DELUSIONAL DISORDER, UNSPECIFIED TYPE [None]
  - DEPRESSED MOOD [None]
  - DEPRESSION [None]
  - DIABETES MELLITUS [None]
  - DISSOCIATION [None]
  - DIZZINESS [None]
  - DRUG INTOLERANCE [None]
  - DRUG WITHDRAWAL SYNDROME [None]
  - FEELING ABNORMAL [None]
  - FLASHBACK [None]
  - GENERAL PHYSICAL HEALTH DETERIORATION [None]
  - MALAISE [None]
  - MENTAL IMPAIRMENT [None]
  - OVERDOSE [None]
  - PHYSICAL ASSAULT [None]
  - POST-TRAUMATIC STRESS DISORDER [None]
  - PSYCHOTIC DISORDER [None]
  - SCIATICA [None]
  - SUICIDAL IDEATION [None]
